FAERS Safety Report 5003271-6 (Version None)
Quarter: 2006Q2

REPORT INFORMATION
  Report Type: 
  Country: None (occurrence: None)
  Receive Date: 20060510
  Receipt Date: 20060428
  Transmission Date: 20061013
  Serious: Yes (Hospitalization)
  Sender: FDA-Public Use
  Company Number: HQWYE059401MAY06

PATIENT
  Age: 89 Year
  Sex: Male

DRUGS (10)
  1. CORDARONE [Suspect]
     Dosage: 200 MG 1X PER 1 DAY ORAL
     Route: 048
     Dates: start: 20060111, end: 20060223
  2. METOPROLOL TARTRATE [Suspect]
     Dosage: 25 MG 1X PER 1 DAY ORAL
     Route: 048
     Dates: start: 20060110, end: 20060223
  3. ISOSORBIDE MONONITRATE [Concomitant]
  4. NU-SEALS ASPIRIN (ACETYLSALICYLIC ACID) [Concomitant]
  5. LIPITOR [Concomitant]
  6. FLUOXETINE [Concomitant]
  7. PLAVIX [Concomitant]
  8. FUROSEMIDE [Concomitant]
  9. COVERSYL (PERINDOPRIL ) [Concomitant]
  10. XATRAL (ALFUZOSIN) [Concomitant]

REACTIONS (4)
  - ASTHENIA [None]
  - BRADYCARDIA [None]
  - CARDIAC FAILURE [None]
  - DIZZINESS [None]
